FAERS Safety Report 8793396 (Version 1)
Quarter: 2012Q4

REPORT INFORMATION
  Report Type: 
  Country: BR (occurrence: BR)
  Receive Date: 20120918
  Receipt Date: 20120918
  Transmission Date: 20130627
  Serious: Yes (Other)
  Sender: FDA-Public Use
  Company Number: PHHY2012BR080091

PATIENT
  Sex: Female
  Weight: 76 kg

DRUGS (2)
  1. DIOVAN [Suspect]
     Indication: BLOOD PRESSURE
     Dosage: 80 mg, daily
     Route: 048
  2. DIURISA [Concomitant]
     Indication: BLOOD PRESSURE
     Dosage: 0.5 DF(40/10mg), daily
     Route: 048

REACTIONS (1)
  - Asthma [Recovering/Resolving]
